FAERS Safety Report 14515876 (Version 1)
Quarter: 2018Q1

REPORT INFORMATION
  Report Type: Report from Study
  Country: US (occurrence: US)
  Receive Date: 20180211
  Receipt Date: 20180211
  Transmission Date: 20180509
  Serious: No
  Sender: FDA-Public Use
  Company Number: US-PUMA BIOTECHNOLOGY, LTD.-2017US016308

PATIENT

DRUGS (3)
  1. NERLYNX [Suspect]
     Active Substance: NERATINIB
     Dosage: 80 MG, DAILY
     Route: 048
     Dates: start: 20171227
  2. NERLYNX [Suspect]
     Active Substance: NERATINIB
     Indication: BREAST CANCER
     Dosage: 240 MG, DAILY
     Route: 048
     Dates: start: 20171116, end: 20171122
  3. NERLYNX [Suspect]
     Active Substance: NERATINIB
     Dosage: 40 MG, DAILY
     Route: 048
     Dates: start: 20171220, end: 20171226

REACTIONS (16)
  - Flatulence [Unknown]
  - Abdominal pain [Unknown]
  - Arthralgia [Unknown]
  - Neuropathy peripheral [Unknown]
  - Nausea [Not Recovered/Not Resolved]
  - Headache [Unknown]
  - Erythema [Unknown]
  - Tremor [Unknown]
  - Burning sensation [Unknown]
  - Dyspepsia [Unknown]
  - Herpes zoster [Unknown]
  - Dizziness [Unknown]
  - Vomiting [Unknown]
  - Abdominal distension [Unknown]
  - Pain [Unknown]
  - Myalgia [Unknown]
